FAERS Safety Report 20870749 (Version 3)
Quarter: 2023Q2

REPORT INFORMATION
  Report Type: Spontaneous
  Country: US (occurrence: US)
  Receive Date: 20220525
  Receipt Date: 20230504
  Transmission Date: 20230722
  Serious: Yes (Other)
  Sender: FDA-Public Use
  Company Number: US-SA-SAC20220523002025

PATIENT
  Age: 31 Year
  Sex: Male

DRUGS (2)
  1. ELOCTATE [Suspect]
     Active Substance: EFMOROCTOCOG ALFA
     Dosage: 6000 UNITS (+/-10%) AS NEEDED FOR BLEEDS
     Route: 042
  2. ELOCTATE [Suspect]
     Active Substance: EFMOROCTOCOG ALFA
     Dosage: 6000 UNITS (+/-10%) AS NEEDED FOR BLEEDS
     Route: 042

REACTIONS (4)
  - Haemorrhage [Recovered/Resolved]
  - Weight increased [Unknown]
  - Dental cleaning [Unknown]
  - Expired product administered [Unknown]

NARRATIVE: CASE EVENT DATE: 20220516
